FAERS Safety Report 19937047 (Version 2)
Quarter: 2021Q4

REPORT INFORMATION
  Report Type: Spontaneous
  Country: SK (occurrence: SK)
  Receive Date: 20211009
  Receipt Date: 20211103
  Transmission Date: 20220303
  Serious: Yes (Hospitalization, Other)
  Sender: FDA-Public Use
  Company Number: SK-ABBVIE-21K-260-4113131-00

PATIENT
  Age: 43 Year
  Sex: Male

DRUGS (1)
  1. SKYRIZI [Suspect]
     Active Substance: RISANKIZUMAB-RZAA
     Indication: Psoriasis
     Dosage: WEEK 0 AND 4
     Route: 058

REACTIONS (5)
  - Epilepsy [Unknown]
  - Depressed level of consciousness [Recovered/Resolved]
  - Hyperglycaemia [Unknown]
  - Liver disorder [Unknown]
  - Thrombocytopenia [Unknown]
